FAERS Safety Report 4558745-9 (Version None)
Quarter: 2005Q1

REPORT INFORMATION
  Report Type: 
  Country: None (occurrence: None)
  Receive Date: 20050121
  Receipt Date: 20050121
  Transmission Date: 20050727
  Serious: No
  Sender: FDA-Public Use
  Company Number: None

PATIENT

DRUGS (6)
  1. INDERAL LA [Suspect]
     Indication: AFFECTIVE DISORDER
     Dosage: 60 MG -ONE TAB BID
     Dates: start: 19921009
  2. INDERAL LA [Suspect]
     Indication: ATTENTION DEFICIT/HYPERACTIVITY DISORDER
     Dosage: 60 MG -ONE TAB BID
     Dates: start: 19921009
  3. INDERAL LA [Suspect]
     Indication: AUTISM
     Dosage: 60 MG -ONE TAB BID
     Dates: start: 19921009
  4. INDERAL LA [Suspect]
     Indication: MENTAL RETARDATION SEVERITY UNSPECIFIED
     Dosage: 60 MG -ONE TAB BID
     Dates: start: 19921009
  5. INDERAL LA [Suspect]
     Indication: PARAESTHESIA
     Dosage: 60 MG -ONE TAB BID
     Dates: start: 19921009
  6. INDERAL LA [Suspect]
     Indication: PHONOLOGICAL DISORDER
     Dosage: 60 MG -ONE TAB BID
     Dates: start: 19921009

REACTIONS (1)
  - UNEVALUABLE EVENT [None]
